FAERS Safety Report 5606595-4 (Version None)
Quarter: 2008Q1

REPORT INFORMATION
  Report Type: 
  Country: None (occurrence: None)
  Receive Date: 20080129
  Receipt Date: 20080124
  Transmission Date: 20080703
  Serious: Yes (Other)
  Sender: FDA-Public Use
  Company Number: US-ASTRAZENECA-2006UW07937

PATIENT
  Age: 15615 Day
  Sex: Female
  Weight: 129.5 kg

DRUGS (4)
  1. SEROQUEL [Suspect]
     Indication: DEPRESSION
     Route: 048
     Dates: start: 19990101, end: 20080101
  2. SEROQUEL [Suspect]
     Indication: BIPOLAR DISORDER
     Route: 048
     Dates: start: 19990101, end: 20080101
  3. SEROQUEL [Suspect]
     Indication: SCHIZOPHRENIA
     Route: 048
     Dates: start: 19990101, end: 20080101
  4. ABILIFY [Concomitant]
     Dates: start: 20000101

REACTIONS (4)
  - BLOOD CHOLESTEROL INCREASED [None]
  - GASTROINTESTINAL HAEMORRHAGE [None]
  - OBESITY [None]
  - TYPE 2 DIABETES MELLITUS [None]
